FAERS Safety Report 11993707 (Version 1)
Quarter: 2016Q1

REPORT INFORMATION
  Report Type: Spontaneous
  Country: US (occurrence: None)
  Receive Date: 20160202
  Receipt Date: 20160202
  Transmission Date: 20160526
  Serious: Yes (Hospitalization)
  Sender: FDA-Public Use
  Company Number: None

PATIENT
  Age: 67 Year
  Sex: Male
  Weight: 64.5 kg

DRUGS (1)
  1. TRAMADOL. [Suspect]
     Active Substance: TRAMADOL
     Indication: PAIN
     Route: 048
     Dates: start: 20150825, end: 20150918

REACTIONS (5)
  - Tachycardia [None]
  - Respiratory disorder [None]
  - Tachypnoea [None]
  - Respiratory distress [None]
  - Wheezing [None]

NARRATIVE: CASE EVENT DATE: 20150925
